FAERS Safety Report 19543651 (Version 1)
Quarter: 2021Q3

REPORT INFORMATION
  Report Type: Report from Study
  Country: CN (occurrence: CN)
  Receive Date: 20210713
  Receipt Date: 20210713
  Transmission Date: 20211014
  Serious: Yes (Death, Hospitalization)
  Sender: FDA-Public Use
  Company Number: CN-ROCHE-2207721

PATIENT
  Age: 71 Year
  Sex: Female
  Weight: 48.5 kg

DRUGS (10)
  1. PACLITAXEL. [Suspect]
     Active Substance: PACLITAXEL
     Indication: OVARIAN CANCER
     Dosage: MOST RECENT DOSE OF PACLITAXEL (231) MG PRIOR TO AE/SAE ONSET ON 16/OCT/2018
     Route: 042
     Dates: start: 20181016
  2. HEPARIN SODIUM. [Concomitant]
     Active Substance: HEPARIN SODIUM
     Dates: start: 20181017, end: 20181017
  3. CIMETIDINE [Concomitant]
     Active Substance: CIMETIDINE
     Dates: start: 20181016, end: 20181016
  4. ATEZOLIZUMAB. [Suspect]
     Active Substance: ATEZOLIZUMAB
     Indication: OVARIAN CANCER
     Dosage: MOST RECENT DOSE OF ATEZOLIZUMAB 1200 MG PRIOR TO AE ONSET ON 16/OCT/2018
     Route: 041
     Dates: start: 20181016
  5. CARBOPLATIN. [Suspect]
     Active Substance: CARBOPLATIN
     Indication: OVARIAN CANCER
     Dosage: MOST RECENT DOSE OF CARBOPLATIN (644 MG) ON 16/OCT/2018?AT A DOSE TO ACHIEVE A TARGET AREA UNDER THE
     Route: 042
     Dates: start: 20181016
  6. PROMETHAZINE HYDROCHLORIDE. [Concomitant]
     Active Substance: PROMETHAZINE HYDROCHLORIDE
     Dates: start: 20181016, end: 20181016
  7. RECOMBINANT HUMAN INTERLEUKIN?11 (UNK INGREDIENTS) [Concomitant]
     Indication: THROMBOCYTOPENIA
  8. DEXAMETHASONE. [Concomitant]
     Active Substance: DEXAMETHASONE
     Route: 048
     Dates: start: 20181016, end: 20181016
  9. RECOMBINANT HUMAN GRANULOCYTE COLONY STIMULATING FACTOR (UNK INGREDIEN [Concomitant]
     Indication: NEUTROPENIA
  10. PALONOSETRON HYDROCHLORIDE. [Concomitant]
     Active Substance: PALONOSETRON HYDROCHLORIDE
     Dates: start: 20181016, end: 20181016

REACTIONS (1)
  - Pneumonia [Recovered/Resolved]

NARRATIVE: CASE EVENT DATE: 20181026
